FAERS Safety Report 7715058-1 (Version None)
Quarter: 2011Q3

REPORT INFORMATION
  Report Type: 
  Country: None (occurrence: None)
  Receive Date: 20110810
  Receipt Date: 20110502
  Transmission Date: 20111222
  Serious: No
  Sender: FDA-Public Use
  Company Number: 1000020267

PATIENT
  Age: 58 Year
  Sex: Female
  Weight: 80.7 kg

DRUGS (14)
  1. PRAVASTATIN [Concomitant]
  2. NASONEX (MOMETASONE FUROATE) (MOMETASONE FUROATE) [Concomitant]
  3. SAVELLA [Suspect]
     Indication: FIBROMYALGIA
     Dosage: SEE IMAGE
     Route: 048
     Dates: start: 20110201, end: 20110201
  4. SAVELLA [Suspect]
     Indication: FIBROMYALGIA
     Dosage: SEE IMAGE
     Route: 048
     Dates: start: 20110201
  5. SAVELLA [Suspect]
     Indication: FIBROMYALGIA
     Dosage: SEE IMAGE
     Route: 048
     Dates: start: 20110201, end: 20110201
  6. SAVELLA [Suspect]
     Indication: FIBROMYALGIA
     Dosage: SEE IMAGE
     Route: 048
     Dates: start: 20110201, end: 20110201
  7. LISINOPRIL (LISINOPRIL, HYDROCHLOROTHIAZIDE) (LISINOPRIL, HYDROCHLOROT [Concomitant]
  8. ADVAIR (FLUTICASONE PROPIONATE, SALMETEROL XINAFOATE) (FLUTICASONE PRO [Concomitant]
  9. CHANTIX [Suspect]
     Indication: SMOKING CESSATION THERAPY
     Dosage: (MG, 1 IN 1 D), ORAL; 1 MG BID (1 MG, 2 IN 1 D), ORAL
     Route: 048
     Dates: start: 20110309
  10. CHANTIX [Suspect]
     Indication: SMOKING CESSATION THERAPY
     Dosage: (MG, 1 IN 1 D), ORAL; 1 MG BID (1 MG, 2 IN 1 D), ORAL
     Route: 048
     Dates: end: 20110401
  11. XANAX [Concomitant]
  12. VITAMINS NOS (VITAMIN NOS) (VITAMINS NOS) [Concomitant]
  13. POTASSIUM (POTASSIUM) (POTASSIUM) [Concomitant]
  14. ZANAFLEX (TIZANIDINE HYDROCHLORIDE) (TABLETS) (TIZANIDINE HYDROCHLORID [Concomitant]

REACTIONS (2)
  - DRUG INTERACTION [None]
  - DRUG INEFFECTIVE [None]
